FAERS Safety Report 15370856 (Version 1)
Quarter: 2018Q3

REPORT INFORMATION
  Report Type: Spontaneous
  Country: US (occurrence: US)
  Receive Date: 20180911
  Receipt Date: 20180911
  Transmission Date: 20181010
  Serious: No
  Sender: FDA-Public Use
  Company Number: US-PERRIGO-18US008270

PATIENT
  Age: 83 Year
  Sex: Male
  Weight: 86.17 kg

DRUGS (3)
  1. METFORMIN [Concomitant]
     Active Substance: METFORMIN HYDROCHLORIDE
     Indication: TYPE 2 DIABETES MELLITUS
     Dosage: 1500 MG
     Route: 048
     Dates: start: 2003
  2. OTHER THERAPEUTIC PRODUCTS [Concomitant]
     Active Substance: UNSPECIFIED INGREDIENT
     Indication: SUPPLEMENTATION THERAPY
     Dosage: UNK
     Route: 065
  3. TESTOSTERONE. [Suspect]
     Active Substance: TESTOSTERONE
     Indication: BLOOD TESTOSTERONE DECREASED
     Dosage: 30 MG TO 60 MG, QAM
     Route: 061
     Dates: start: 201705

REACTIONS (4)
  - Product administered at inappropriate site [Not Recovered/Not Resolved]
  - Inappropriate schedule of drug administration [Not Recovered/Not Resolved]
  - Drug effect decreased [Unknown]
  - Underdose [Not Recovered/Not Resolved]

NARRATIVE: CASE EVENT DATE: 201705
